FAERS Safety Report 5126436-1 (Version None)
Quarter: 2006Q4

REPORT INFORMATION
  Report Type: 
  Country: None (occurrence: None)
  Receive Date: 20061010
  Receipt Date: 20060928
  Transmission Date: 20070319
  Serious: Yes (Hospitalization, Other)
  Sender: FDA-Public Use
  Company Number: 2006BI013872

PATIENT
  Age: 55 Year
  Sex: Male

DRUGS (2)
  1. AVONEX [Suspect]
     Indication: MULTIPLE SCLEROSIS
     Dosage: IM
     Route: 030
     Dates: end: 20040101
  2. COPAXONE [Concomitant]

REACTIONS (4)
  - DIZZINESS [None]
  - LOWER RESPIRATORY TRACT INFECTION [None]
  - RENAL DISORDER [None]
  - UPPER RESPIRATORY TRACT INFECTION [None]
